FAERS Safety Report 18067348 (Version 1)
Quarter: 2020Q3

REPORT INFORMATION
  Report Type: Spontaneous
  Country: US (occurrence: US)
  Receive Date: 20200724
  Receipt Date: 20200724
  Transmission Date: 20201103
  Serious: Yes (Death, Life-Threatening, Hospitalization)
  Sender: FDA-Public Use
  Company Number: US-MEDEXUS PHARMA, INC.-2020MED00216

PATIENT
  Age: 79 Year
  Sex: Male

DRUGS (5)
  1. METHOTREXATE. [Suspect]
     Active Substance: METHOTREXATE
     Indication: GIANT CELL ARTERITIS
     Dosage: 15 MG, 1X/WEEK
     Route: 048
  2. FOLIC ACID. [Concomitant]
     Active Substance: FOLIC ACID
     Dosage: 1 MG, 1X/DAY
     Route: 065
  3. IRON [Concomitant]
     Active Substance: IRON
     Route: 042
  4. PREDNISONE. [Concomitant]
     Active Substance: PREDNISONE
     Dosage: 2 MG, 1X/DAY
     Route: 065
  5. PROCRIT [Concomitant]
     Active Substance: ERYTHROPOIETIN
     Route: 065

REACTIONS (5)
  - Pancytopenia [Fatal]
  - Mucosal inflammation [Fatal]
  - Pulseless electrical activity [Fatal]
  - Ventricular fibrillation [Recovered/Resolved]
  - Septic shock [Fatal]
